FAERS Safety Report 19467274 (Version 1)
Quarter: 2021Q2

REPORT INFORMATION
  Report Type: Spontaneous
  Country: FR (occurrence: FR)
  Receive Date: 20210628
  Receipt Date: 20210628
  Transmission Date: 20210717
  Serious: Yes (Hospitalization)
  Sender: FDA-Public Use
  Company Number: FR-ROCHE-2854263

PATIENT
  Age: 69 Year
  Sex: Female
  Weight: 39.7 kg

DRUGS (13)
  1. COMIRNATY [Suspect]
     Active Substance: TOZINAMERAN
     Indication: COVID-19 IMMUNISATION
     Dosage: D1
     Route: 065
     Dates: start: 20210520, end: 20210520
  2. SMECTA [Concomitant]
     Active Substance: MONTMORILLONITE
     Dosage: 1 SACHET 3 FOIS PAR JOUR
     Route: 048
     Dates: start: 20210531
  3. XGEVA [Concomitant]
     Active Substance: DENOSUMAB
     Route: 058
  4. CACIT VITAMINE D3 [Concomitant]
     Active Substance: CALCIUM CARBONATE\CHOLECALCIFEROL
     Route: 048
  5. ACTISKENAN [Concomitant]
     Active Substance: MORPHINE SULFATE
     Route: 048
     Dates: start: 20210530
  6. INNOHEP [Concomitant]
     Active Substance: TINZAPARIN SODIUM
  7. PRIMPERAN [Concomitant]
     Active Substance: METOCLOPRAMIDE HYDROCHLORIDE
     Dates: start: 20210531
  8. PARACETAMOL [Concomitant]
     Active Substance: ACETAMINOPHEN
     Dosage: 1 G 3 FOIS PAR JOUR
     Dates: start: 20210531
  9. SPASFON LYOC [Concomitant]
     Active Substance: PHLOROGLUCINOL
     Route: 048
     Dates: start: 20210531
  10. XELODA [Suspect]
     Active Substance: CAPECITABINE
     Indication: NEOPLASM MALIGNANT
     Dosage: 1650 MG 2X/JOUR
     Route: 048
     Dates: start: 201811, end: 20210531
  11. LANSOPRAZOLE. [Concomitant]
     Active Substance: LANSOPRAZOLE
     Route: 048
     Dates: start: 20210531
  12. SKENAN [Concomitant]
     Active Substance: MORPHINE SULFATE
     Route: 048
     Dates: start: 20210530
  13. ARIMIDEX [Suspect]
     Active Substance: ANASTROZOLE
     Indication: BREAST CANCER
     Route: 048
     Dates: start: 201808, end: 20210601

REACTIONS (2)
  - Aortic thrombosis [Not Recovered/Not Resolved]
  - Intestinal ischaemia [Not Recovered/Not Resolved]

NARRATIVE: CASE EVENT DATE: 20210505
